FAERS Safety Report 8535267-1 (Version None)
Quarter: 2012Q3

REPORT INFORMATION
  Report Type: 
  Country: None (occurrence: None)
  Receive Date: 20120725
  Receipt Date: 20120717
  Transmission Date: 20120928
  Serious: Yes (Other)
  Sender: FDA-Public Use
  Company Number: US-TEVA-347486USA

PATIENT
  Sex: Male

DRUGS (2)
  1. TAMOXIFEN CITRATE [Suspect]
     Dates: start: 20100701
  2. TAMOXIFEN CITRATE [Suspect]
     Indication: BREAST CANCER
     Dosage: HAS BEEN ON FOR 2 YEARS
     Dates: end: 20100502

REACTIONS (2)
  - PENIS DISORDER [None]
  - PROSTATE CANCER [None]
